FAERS Safety Report 7563682-1 (Version None)
Quarter: 2011Q2

REPORT INFORMATION
  Report Type: 
  Country: None (occurrence: None)
  Receive Date: 20110622
  Receipt Date: 20110620
  Transmission Date: 20111010
  Serious: Yes (Death, Hospitalization)
  Sender: FDA-Public Use
  Company Number: US-BRISTOL-MYERS SQUIBB COMPANY-14630016

PATIENT
  Age: 81 Year
  Sex: Male
  Weight: 100 kg

DRUGS (6)
  1. CISPLATIN [Suspect]
     Indication: OESOPHAGEAL ADENOCARCINOMA
     Dosage: FIRST DOSE: 24MAR09
     Dates: start: 20090421, end: 20090421
  2. BUDESONIDE [Concomitant]
  3. TAXOL [Suspect]
     Indication: OESOPHAGEAL ADENOCARCINOMA
     Dosage: FIRST DOSE: 24MAR09,50 MG/M2
     Dates: start: 20090421, end: 20090421
  4. CETUXIMAB [Suspect]
     Indication: OESOPHAGEAL ADENOCARCINOMA
  5. ALBUTEROL SULFATE AUTOHALER [Concomitant]
  6. CLONIDINE [Concomitant]

REACTIONS (5)
  - ACUTE RESPIRATORY DISTRESS SYNDROME [None]
  - EMBOLISM [None]
  - HYPOXIA [None]
  - HYPONATRAEMIA [None]
  - DYSPNOEA [None]
